FAERS Safety Report 6776384-6 (Version None)
Quarter: 2010Q2

REPORT INFORMATION
  Report Type: 
  Country: None (occurrence: None)
  Receive Date: 20100617
  Receipt Date: 20100609
  Transmission Date: 20101027
  Serious: Yes (Other)
  Sender: FDA-Public Use
  Company Number: FR-ALLERGAN-1007551US

PATIENT
  Age: 82 Year
  Sex: Female
  Weight: 63 kg

DRUGS (4)
  1. BIMATOPROST AND TIMOLOL MALEATE [Suspect]
     Indication: GLAUCOMA
     Route: 047
  2. CARTREX [Concomitant]
  3. ZESTRIL [Concomitant]
  4. LEVOTHYROXINE SODIUM [Concomitant]
     Indication: HYPOTHYROIDISM

REACTIONS (2)
  - ARRHYTHMIA [None]
  - CARDIO-RESPIRATORY DISTRESS [None]
